FAERS Safety Report 6135084-6 (Version None)
Quarter: 2009Q1

REPORT INFORMATION
  Report Type: 
  Country: None (occurrence: None)
  Receive Date: 20090327
  Receipt Date: 20090316
  Transmission Date: 20090719
  Serious: Yes (Hospitalization)
  Sender: FDA-Public Use
  Company Number: AU-WYE-H08647109

PATIENT
  Age: 35 Year
  Sex: Male

DRUGS (5)
  1. SOMAC [Suspect]
     Indication: GASTRIC ULCER
     Route: 048
     Dates: start: 20080415, end: 20080418
  2. PYRIDOXINE [Concomitant]
     Dosage: 25 MG, FREQUENCY NOT SPECIFIED
  3. D-PENAMINE [Concomitant]
     Dosage: 1 GM, FREQUENCY NOT SPECIFIED
  4. KALURIL [Suspect]
     Indication: OEDEMA
     Dosage: 10 MG, FREQUENCY NOT SPECIFIED
     Dates: start: 20080417, end: 20080423
  5. SLOW-K [Suspect]
     Dosage: 600 MG, FREQUENCY NOT SPECIFIED
     Route: 048
     Dates: start: 20080401, end: 20080423

REACTIONS (2)
  - ASCITES [None]
  - RASH MACULAR [None]
